FAERS Safety Report 24896850 (Version 1)
Quarter: 2025Q1

REPORT INFORMATION
  Report Type: Spontaneous
  Country: CZ (occurrence: CZ)
  Receive Date: 20250128
  Receipt Date: 20250128
  Transmission Date: 20250409
  Serious: Yes (Other)
  Sender: PFIZER
  Company Number: CZ-ROCHE-10000185767

PATIENT
  Sex: Female

DRUGS (2)
  1. RITUXIMAB [Suspect]
     Active Substance: RITUXIMAB
  2. MOSUNETUZUMAB [Suspect]
     Active Substance: MOSUNETUZUMAB

REACTIONS (1)
  - Disease progression [Unknown]
